FAERS Safety Report 13376390 (Version 3)
Quarter: 2018Q4

REPORT INFORMATION
  Report Type: Spontaneous
  Country: US (occurrence: US)
  Receive Date: 20170328
  Receipt Date: 20181022
  Transmission Date: 20190204
  Serious: No
  Sender: FDA-Public Use
  Company Number: US-PFIZER INC-2017127487

PATIENT
  Age: 70 Year
  Sex: Female
  Weight: 75 kg

DRUGS (2)
  1. ADVIL LIQUI-GELS [Suspect]
     Active Substance: IBUPROFEN
     Dosage: 200 MG, 1X/DAY (IN THE MORNING BY MOUTH AT 10AM)
     Route: 048
  2. ADVIL LIQUI-GELS [Suspect]
     Active Substance: IBUPROFEN
     Indication: SCIATICA
     Dosage: UNK UNK, DAILY

REACTIONS (3)
  - Body height decreased [Unknown]
  - Tinnitus [Unknown]
  - Intentional product misuse [Unknown]
